FAERS Safety Report 7983082-X (Version None)
Quarter: 2011Q4

REPORT INFORMATION
  Report Type: 
  Country: None (occurrence: None)
  Receive Date: 20111215
  Receipt Date: 20111206
  Transmission Date: 20120403
  Serious: Yes (Other)
  Sender: FDA-Public Use
  Company Number: US-BAYER-2011-075206

PATIENT
  Sex: Female
  Weight: 56.689 kg

DRUGS (3)
  1. YAZ [Suspect]
     Indication: PREMENSTRUAL SYNDROME
  2. YAZ [Suspect]
     Indication: ACNE
     Dosage: UNK
     Dates: start: 20090601, end: 20090701
  3. MOTRIN [Concomitant]
     Dosage: UNK

REACTIONS (2)
  - INJURY [None]
  - CEREBROVASCULAR ACCIDENT [None]
